FAERS Safety Report 11653080 (Version 1)
Quarter: 2015Q4

REPORT INFORMATION
  Report Type: Spontaneous
  Country: US (occurrence: None)
  Receive Date: 20151022
  Receipt Date: 20151022
  Transmission Date: 20160304
  Serious: Yes (Hospitalization)
  Sender: FDA-Public Use
  Company Number: None

PATIENT
  Age: 26 Year
  Sex: Female
  Weight: 63.5 kg

DRUGS (3)
  1. KEPPRA [Suspect]
     Active Substance: LEVETIRACETAM
     Indication: EPILEPSY
  2. PRENATAL VITAMINS [Concomitant]
     Active Substance: VITAMINS
  3. LAMICTAL [Concomitant]
     Active Substance: LAMOTRIGINE

REACTIONS (5)
  - Product substitution issue [None]
  - Drug level changed [None]
  - Seizure [None]
  - Aura [None]
  - Dyskinesia [None]

NARRATIVE: CASE EVENT DATE: 20151012
